APPROVED DRUG PRODUCT: PHARMASEAL SCRUB CARE
Active Ingredient: CHLORHEXIDINE GLUCONATE
Strength: 4%
Dosage Form/Route: SPONGE;TOPICAL
Application: N019793 | Product #001
Applicant: CAREFUSION 2200 INC
Approved: Dec 2, 1988 | RLD: No | RS: No | Type: DISCN